FAERS Safety Report 6026285-6 (Version None)
Quarter: 2008Q4

REPORT INFORMATION
  Report Type: 
  Country: None (occurrence: None)
  Receive Date: 20081230
  Receipt Date: 20081215
  Transmission Date: 20090506
  Serious: Yes (Other)
  Sender: FDA-Public Use
  Company Number: S08-FRA-02344-01

PATIENT
  Age: 24 Year
  Sex: Female
  Weight: 48 kg

DRUGS (2)
  1. ESCITALOPRAM [Suspect]
     Indication: DEPRESSION
     Dosage: 10 MG (10  MG, 1 IN 1 D), ORAL
     Route: 048
     Dates: start: 20080218, end: 20080222
  2. ALPRAZOLAM [Concomitant]

REACTIONS (2)
  - RECTAL HAEMORRHAGE [None]
  - THROMBOCYTOPENIA [None]
